FAERS Safety Report 10176461 (Version 2)
Quarter: 2014Q2

REPORT INFORMATION
  Report Type: Spontaneous
  Country: JP (occurrence: JP)
  Receive Date: 20140516
  Receipt Date: 20140516
  Transmission Date: 20141212
  Serious: Yes (Hospitalization)
  Sender: FDA-Public Use
  Company Number: JP-PFIZER INC-2014104102

PATIENT
  Age: 73 Year
  Sex: Male
  Weight: 59 kg

DRUGS (5)
  1. CHAMPIX [Suspect]
     Indication: SMOKING CESSATION THERAPY
     Dosage: UNK
     Route: 048
     Dates: start: 201311
  2. NORVASC [Concomitant]
     Indication: HYPERTENSION
     Dosage: 2.5 MG, 1X/DAY
     Route: 048
  3. OMEPRAL [Concomitant]
     Dosage: 20 MG, 1X/DAY
     Route: 048
  4. ALFACALCIDOL [Concomitant]
     Dosage: 1.0 UG, 1X/DAY
     Route: 048
  5. AMOBAN [Concomitant]
     Indication: INSOMNIA
     Dosage: 7.5 MG, 1X/DAY
     Route: 048

REACTIONS (1)
  - Hepatic function abnormal [Recovered/Resolved]
